FAERS Safety Report 14381797 (Version 1)
Quarter: 2018Q1

REPORT INFORMATION
  Report Type: Spontaneous
  Country: US (occurrence: US)
  Receive Date: 20180112
  Receipt Date: 20180112
  Transmission Date: 20180509
  Serious: No
  Sender: FDA-Public Use
  Company Number: US-DRREDDYS-USA/USA/17/0090477

PATIENT
  Age: 57 Year
  Sex: Female
  Weight: 80.73 kg

DRUGS (1)
  1. HABITROL [Suspect]
     Active Substance: NICOTINE
     Indication: SMOKING CESSATION THERAPY
     Route: 061
     Dates: start: 2017, end: 201701

REACTIONS (3)
  - Incorrect dose administered [Unknown]
  - Nicotine dependence [Unknown]
  - Product quality issue [Unknown]
